FAERS Safety Report 12847718 (Version 1)
Quarter: 2016Q4

REPORT INFORMATION
  Report Type: Spontaneous
  Country: US (occurrence: US)
  Receive Date: 20161014
  Receipt Date: 20161014
  Transmission Date: 20170207
  Serious: No
  Sender: FDA-Public Use
  Company Number: US-JNJFOC-20160908342

PATIENT
  Age: 81 Year
  Sex: Female
  Weight: 136 kg

DRUGS (2)
  1. TYLENOL EXTRA STRENGTH [Suspect]
     Active Substance: ACETAMINOPHEN
     Indication: IRRITABLE BOWEL SYNDROME
     Dosage: 1-2 CAPLETS PER DOSE ONCE A DAY AS NEEDED.
     Route: 048
  2. WARFARIN [Concomitant]
     Active Substance: WARFARIN
     Indication: PRODUCT USED FOR UNKNOWN INDICATION
     Route: 065

REACTIONS (3)
  - Drug administration error [Unknown]
  - Intentional product misuse [Unknown]
  - Intentional product use issue [Unknown]
